FAERS Safety Report 9455969 (Version 1)
Quarter: 2013Q3

REPORT INFORMATION
  Report Type: Spontaneous
  Country: US (occurrence: US)
  Receive Date: 20130813
  Receipt Date: 20130813
  Transmission Date: 20140515
  Serious: No
  Sender: FDA-Public Use
  Company Number: US-GALDERMA-US-GDP-12414818

PATIENT
  Age: 73 Year
  Sex: Female

DRUGS (3)
  1. CLOBEX (CLOBETASOL PROPIONATE) LOTION, 0.05% [Suspect]
     Indication: PRURITUS
     Route: 061
  2. PROCRIT [Concomitant]
     Indication: ANAEMIA
  3. SYNTHROID [Concomitant]
     Indication: THYROIDECTOMY

REACTIONS (5)
  - Contusion [Not Recovered/Not Resolved]
  - Skin discolouration [Not Recovered/Not Resolved]
  - Skin atrophy [Not Recovered/Not Resolved]
  - Off label use [Unknown]
  - Incorrect drug administration duration [Not Recovered/Not Resolved]
